FAERS Safety Report 6201657-5 (Version None)
Quarter: 2009Q2

REPORT INFORMATION
  Report Type: 
  Country: None (occurrence: None)
  Receive Date: 20090526
  Receipt Date: 20080518
  Transmission Date: 20091009
  Serious: No
  Sender: FDA-Public Use
  Company Number: US-BRISTOL-MYERS SQUIBB COMPANY-14196935

PATIENT
  Age: 4 Decade
  Sex: Male

DRUGS (3)
  1. ENTECAVIR [Suspect]
     Indication: HEPATITIS B
     Dosage: 4 TO 5 MO ON ENTECAVIR 0.5 MG INCREASED TO 1 MG FOR 10 WEEKS.
  2. VICODIN [Concomitant]
  3. LASIX [Concomitant]

REACTIONS (1)
  - NIPPLE EXUDATE BLOODY [None]
